FAERS Safety Report 11813539 (Version 3)
Quarter: 2015Q4

REPORT INFORMATION
  Report Type: Spontaneous
  Country: US (occurrence: US)
  Receive Date: 20151209
  Receipt Date: 20151228
  Transmission Date: 20160305
  Serious: No
  Sender: FDA-Public Use
  Company Number: US-009507513-1512USA004678

PATIENT
  Weight: 83.9 kg

DRUGS (2)
  1. NEXPLANON [Suspect]
     Active Substance: ETONOGESTREL
     Dosage: UNK
     Route: 059
     Dates: start: 20140310, end: 20151207
  2. NEXPLANON [Suspect]
     Active Substance: ETONOGESTREL
     Dosage: UNK
     Route: 059
     Dates: start: 20151207

REACTIONS (3)
  - Pelvic pain [Unknown]
  - Headache [Unknown]
  - Device kink [Recovered/Resolved]

NARRATIVE: CASE EVENT DATE: 201511
